FAERS Safety Report 10229327 (Version 2)
Quarter: 2014Q2

REPORT INFORMATION
  Report Type: Report from Study
  Country: AU (occurrence: AU)
  Receive Date: 20140611
  Receipt Date: 20140611
  Transmission Date: 20141212
  Serious: Yes (Hospitalization)
  Sender: FDA-Public Use
  Company Number: AU-ROCHE-1243639

PATIENT
  Age: 45 Year
  Sex: Male
  Weight: 67.1 kg

DRUGS (14)
  1. OBINUTUZUMAB [Suspect]
     Indication: B-CELL LYMPHOMA
     Dosage: DAYS 1, 8 AND 15 OF CYCLE 1 AS PER THE PROTOCOL.
     Route: 042
     Dates: start: 20120801
  2. OBINUTUZUMAB [Suspect]
     Dosage: VOLUME OF LAST OBINUTUZUMAB TAKEN 250 ML AT A CONCENTRATION OF 4 MG/ML, DATE OF MOST RECENT DOSE OF
     Route: 042
  3. BENDAMUSTINE [Suspect]
     Indication: B-CELL LYMPHOMA
     Dosage: DOSE OF LAST BENDAMUSTINE TAKEN: 160 MG?DATE OF MOST RECENT DOSE OF BENDAMUSTINE PRIOR TO AE ONSET:
     Route: 042
  4. CHLORSIG [Concomitant]
     Indication: EYE INFECTION
     Route: 065
     Dates: start: 20130628, end: 20130629
  5. FILGRASTIM [Concomitant]
     Indication: NEUTROPENIA
     Route: 065
     Dates: start: 20130612, end: 20130616
  6. FILGRASTIM [Concomitant]
     Dosage: DOSE 300MCG
     Route: 065
     Dates: start: 20130630, end: 20130703
  7. PARACETAMOL [Concomitant]
     Indication: INFUSION RELATED REACTION
     Dosage: PRN
     Route: 065
     Dates: start: 20130630, end: 20130704
  8. PARACETAMOL [Concomitant]
     Indication: PYREXIA
     Route: 065
     Dates: start: 20120801
  9. PARACETAMOL [Concomitant]
     Indication: HEADACHE
  10. LORATADINE [Concomitant]
     Indication: INFUSION RELATED REACTION
     Route: 065
     Dates: start: 20120801
  11. ENOXAPARIN [Concomitant]
     Indication: PROPHYLAXIS
     Route: 065
     Dates: start: 20130701, end: 20130703
  12. METOCLOPRAMIDE [Concomitant]
     Indication: VOMITING
     Dosage: 10-20MG PRN
     Route: 065
     Dates: start: 20130703, end: 20130703
  13. CODEINE LINCTUS [Concomitant]
     Indication: PRODUCTIVE COUGH
     Dosage: 5-10 ML
     Route: 065
     Dates: start: 20130630, end: 20130703
  14. COLOXYL + SENNA [Concomitant]
     Indication: CONSTIPATION
     Route: 065
     Dates: start: 20130703, end: 20130703

REACTIONS (1)
  - Febrile neutropenia [Recovered/Resolved]
